FAERS Safety Report 5673359-5 (Version None)
Quarter: 2008Q2

REPORT INFORMATION
  Report Type: 
  Country: None (occurrence: None)
  Receive Date: 20080219
  Receipt Date: 20071031
  Transmission Date: 20081010
  Serious: No
  Sender: FDA-Public Use
  Company Number: TPA2007A02237

PATIENT
  Age: 6 Decade
  Sex: Male

DRUGS (4)
  1. ROZEREM [Suspect]
     Indication: SLEEP DISORDER
     Dosage: 8 MG, PER ORAL
     Route: 048
  2. KLONOPIN [Concomitant]
  3. ABILIFY [Concomitant]
  4. DEXEDRINE [Concomitant]

REACTIONS (1)
  - MIDDLE INSOMNIA [None]
